FAERS Safety Report 19757079 (Version 1)
Quarter: 2021Q3

REPORT INFORMATION
  Report Type: Spontaneous
  Country: US (occurrence: US)
  Receive Date: 20210827
  Receipt Date: 20210827
  Transmission Date: 20211014
  Serious: No
  Sender: FDA-Public Use
  Company Number: US-ENDO PHARMACEUTICALS INC-2021-001123

PATIENT
  Age: 42 Year
  Sex: Male
  Weight: 151.93 kg

DRUGS (4)
  1. TESTOPEL [Suspect]
     Active Substance: TESTOSTERONE
     Indication: HYPOGONADISM MALE
     Dosage: UNK UNKNOWN, UNKNOWN; 10 PELLETS
     Route: 065
     Dates: start: 201909
  2. TESTOPEL [Suspect]
     Active Substance: TESTOSTERONE
     Dosage: UNK UNKNOWN, UNKNOWN; 6 PELLETS
     Route: 065
     Dates: start: 20201216
  3. TESTOPEL [Suspect]
     Active Substance: TESTOSTERONE
     Indication: HYPOGONADISM MALE
     Dosage: UNK UNKNOWN, UNKNOWN; 10 PELLETS
     Route: 065
     Dates: start: 201909
  4. TESTOPEL [Suspect]
     Active Substance: TESTOSTERONE
     Dosage: UNK UNKNOWN, UNKNOWN; 6 PELLETS
     Route: 065
     Dates: start: 20201216

REACTIONS (2)
  - Off label use [Recovered/Resolved]
  - Blood testosterone decreased [Unknown]

NARRATIVE: CASE EVENT DATE: 201909
